FAERS Safety Report 10383092 (Version 1)
Quarter: 2014Q3

REPORT INFORMATION
  Report Type: Spontaneous
  Country: US (occurrence: US)
  Receive Date: 20140813
  Receipt Date: 20140813
  Transmission Date: 20150326
  Serious: No
  Sender: FDA-Public Use
  Company Number: -SAAVPROD-FABR-1003515

PATIENT
  Age: 52 Year
  Sex: Female

DRUGS (1)
  1. AGALSIDASE BETA [Suspect]
     Active Substance: AGALSIDASE BETA
     Indication: FABRY^S DISEASE
     Dosage: 100 MG, Q2W
     Route: 042
     Dates: start: 2013

REACTIONS (3)
  - Weight increased [Unknown]
  - Asthenia [Unknown]
  - Burning sensation [Unknown]

NARRATIVE: CASE EVENT DATE: 20130809
